FAERS Safety Report 6703427-8 (Version None)
Quarter: 2010Q2

REPORT INFORMATION
  Report Type: 
  Country: None (occurrence: None)
  Receive Date: 20100428
  Receipt Date: 20100419
  Transmission Date: 20101027
  Serious: Yes (Death)
  Sender: FDA-Public Use
  Company Number: WAES 1003USA03977

PATIENT

DRUGS (2)
  1. ZAP ZOLINZA (VORINOSTAT) [Suspect]
     Dosage: UNK;PO
     Route: 048
  2. PREDNISONE [Concomitant]

REACTIONS (2)
  - ANAPLASTIC LARGE CELL LYMPHOMA T- AND NULL-CELL TYPES REFRACTORY [None]
  - MALIGNANT NEOPLASM PROGRESSION [None]
